FAERS Safety Report 8685888 (Version 2)
Quarter: 2012Q4

REPORT INFORMATION
  Report Type: 
  Country: US (occurrence: US)
  Receive Date: 20120726
  Receipt Date: 20121016
  Transmission Date: 20130627
  Serious: No
  Sender: FDA-Public Use
  Company Number: US-ASTRAZENECA-2011SE51093

PATIENT
  Age: 48 Year
  Sex: Female

DRUGS (1)
  1. SEROQUEL [Suspect]
     Route: 048

REACTIONS (6)
  - Panic disorder [Unknown]
  - Attention deficit/hyperactivity disorder [Unknown]
  - Insomnia [Unknown]
  - Crying [Unknown]
  - Nervousness [Unknown]
  - Drug dose omission [Unknown]
